FAERS Safety Report 12639579 (Version 1)
Quarter: 2016Q3

REPORT INFORMATION
  Report Type: Spontaneous
  Country: US (occurrence: None)
  Receive Date: 20160809
  Receipt Date: 20160809
  Transmission Date: 20161109
  Serious: Yes (Death)
  Sender: FDA-Public Use
  Company Number: None

PATIENT
  Age: 22 Year
  Sex: Male

DRUGS (3)
  1. MITRAGYNINE [Suspect]
     Active Substance: MITRAGYNINE
  2. ALPRAZOLAM. [Suspect]
     Active Substance: ALPRAZOLAM
  3. METHADONE [Suspect]
     Active Substance: METHADONE HYDROCHLORIDE

REACTIONS (6)
  - Accidental death [None]
  - Puncture site reaction [None]
  - Respiratory arrest [None]
  - Scar [None]
  - Unresponsive to stimuli [None]
  - Toxicity to various agents [None]

NARRATIVE: CASE EVENT DATE: 20150308
